FAERS Safety Report 10529968 (Version 2)
Quarter: 2014Q4

REPORT INFORMATION
  Report Type: Report from Study
  Country: US (occurrence: US)
  Receive Date: 20141021
  Receipt Date: 20141030
  Transmission Date: 20150528
  Serious: Yes (Hospitalization, Other)
  Sender: FDA-Public Use
  Company Number: US-SA-2014SA141077

PATIENT
  Age: 22 Year
  Sex: Female

DRUGS (2)
  1. SOLOSTAR [Concomitant]
     Active Substance: DEVICE
  2. APIDRA SOLOSTAR [Suspect]
     Active Substance: INSULIN GLULISINE
     Indication: DIABETES MELLITUS
     Dosage: DOSE: 17 UNITS IN MORNING AND AT LUNCH AND 12 UNITS AT NIGHT.
     Route: 065

REACTIONS (3)
  - Stillbirth [Unknown]
  - Escherichia infection [Unknown]
  - Renal failure [Unknown]

NARRATIVE: CASE EVENT DATE: 201403
